FAERS Safety Report 18230051 (Version 1)
Quarter: 2020Q3

REPORT INFORMATION
  Report Type: Spontaneous
  Country: US (occurrence: US)
  Receive Date: 20200903
  Receipt Date: 20200903
  Transmission Date: 20201103
  Serious: No
  Sender: FDA-Public Use
  Company Number: US-NEXGEN PHARMA, INC.-2089379

PATIENT
  Age: 46 Year
  Sex: Female

DRUGS (2)
  1. CHENODAL [Suspect]
     Active Substance: CHENODIOL
     Indication: LIPID METABOLISM DISORDER
     Route: 048
     Dates: start: 20160211
  2. CHOLBAM [Concomitant]
     Active Substance: CHOLIC ACID
     Route: 048
     Dates: start: 20200409

REACTIONS (1)
  - Otitis media [Unknown]
